FAERS Safety Report 6243416-3 (Version None)
Quarter: 2009Q2

REPORT INFORMATION
  Report Type: 
  Country: None (occurrence: None)
  Receive Date: 20090622
  Receipt Date: 20090622
  Transmission Date: 20091009
  Serious: No
  Sender: FDA-Public Use
  Company Number: None

PATIENT
  Age: 38 Year
  Sex: Female
  Weight: 63.5036 kg

DRUGS (1)
  1. ZICAM [Suspect]
     Indication: INFLUENZA
     Dosage: USED FOR APPROX 5-6 DAYS
     Dates: start: 20080204, end: 20080210

REACTIONS (1)
  - HYPOSMIA [None]
